FAERS Safety Report 9520751 (Version 1)
Quarter: 2013Q1

REPORT INFORMATION
  Report Type: Spontaneous
  Country: US (occurrence: None)
  Receive Date: 20130305
  Receipt Date: 20130305
  Transmission Date: 20140127
  Serious: Yes (Hospitalization)
  Sender: FDA-Public Use
  Company Number: 163-21880-12012356

PATIENT
  Age: 85 Year
  Sex: Female

DRUGS (8)
  1. REVLIMID [Suspect]
     Indication: PLASMA CELL MYELOMA
     Dosage: 25MG, 1 IN 1 D, PO
     Route: 048
     Dates: start: 20120111, end: 20120115
  2. VITAMIN D (ERGOCALCIFEROL) [Concomitant]
  3. TRAMADOL HCL (TRAMADOL HYDROCHLORIDE) [Concomitant]
  4. PREDNISONE (PREDNISONE) [Concomitant]
  5. LUTEIN (XANTOFYL) [Concomitant]
  6. IRON (IRON) [Concomitant]
  7. COMBIGAN (COMBIGAN) [Concomitant]
  8. ASPIRIN (ACETYLSALICYLIC ACID) [Concomitant]

REACTIONS (2)
  - Hypertension [None]
  - Dizziness [None]
